FAERS Safety Report 7914307-4 (Version None)
Quarter: 2011Q4

REPORT INFORMATION
  Report Type: 
  Country: None (occurrence: None)
  Receive Date: 20111115
  Receipt Date: 20111107
  Transmission Date: 20120403
  Serious: Yes (Death, Hospitalization, Other)
  Sender: FDA-Public Use
  Company Number: US-BAXTER-2008BH001304

PATIENT
  Age: 66 Year
  Sex: Female
  Weight: 70 kg

DRUGS (48)
  1. HEPARIN SODIUM INJECTION [Suspect]
     Route: 033
     Dates: start: 20080601, end: 20080601
  2. HEPARIN SODIUM INJECTION [Suspect]
     Route: 033
     Dates: start: 20080930, end: 20081002
  3. HEPARIN SODIUM INJECTION [Suspect]
     Route: 013
     Dates: start: 20080717, end: 20080925
  4. ASPIRIN [Suspect]
     Indication: PRODUCT USED FOR UNKNOWN INDICATION
     Route: 065
  5. DIANEAL [Concomitant]
     Indication: RENAL FAILURE CHRONIC
     Route: 033
  6. FUROSEMIDE [Concomitant]
     Indication: PRODUCT USED FOR UNKNOWN INDICATION
     Route: 065
  7. HEPARIN SODIUM INJECTION [Suspect]
     Indication: THROMBOSIS PROPHYLAXIS
     Route: 033
     Dates: start: 20070801
  8. HEPARIN SODIUM INJECTION [Suspect]
     Route: 033
     Dates: start: 20081015, end: 20081015
  9. HEPARIN SODIUM INJECTION [Suspect]
     Route: 033
     Dates: end: 20080101
  10. NEXIUM [Concomitant]
     Indication: GASTRIC ULCER
     Route: 048
  11. PERCOCET [Concomitant]
     Indication: PRODUCT USED FOR UNKNOWN INDICATION
     Route: 048
  12. PROCRIT [Concomitant]
     Indication: PRODUCT USED FOR UNKNOWN INDICATION
     Route: 065
  13. CYCLOSPORINE [Concomitant]
     Indication: PRODUCT USED FOR UNKNOWN INDICATION
     Route: 065
  14. FERRLECIT                               /USA/ [Concomitant]
     Indication: PRODUCT USED FOR UNKNOWN INDICATION
     Route: 065
  15. HEPARIN SODIUM 5,000 UNITS IN DEXTROSE 5% [Suspect]
     Indication: PRODUCT USED FOR UNKNOWN INDICATION
     Route: 042
     Dates: start: 20070921, end: 20070922
  16. HEPARIN SODIUM INJECTION [Suspect]
     Route: 065
     Dates: end: 20081015
  17. HEPARIN SODIUM INJECTION [Suspect]
     Route: 042
     Dates: start: 20080717, end: 20080925
  18. HEPARIN SODIUM INJECTION [Suspect]
     Route: 065
     Dates: start: 20080711
  19. HEPARIN SODIUM INJECTION [Suspect]
     Route: 033
     Dates: start: 20081013, end: 20081014
  20. ROCALTROL [Concomitant]
     Indication: RENAL DISORDER
     Route: 048
  21. PHOSLO [Concomitant]
     Indication: RENAL FAILURE CHRONIC
     Route: 048
  22. CIPRO [Concomitant]
     Indication: PRODUCT USED FOR UNKNOWN INDICATION
     Route: 065
  23. COUMADIN [Concomitant]
     Indication: PRODUCT USED FOR UNKNOWN INDICATION
     Route: 065
  24. MAGNESIUM [Concomitant]
     Indication: PRODUCT USED FOR UNKNOWN INDICATION
     Route: 065
  25. HEPARIN SODIUM INJECTION [Suspect]
     Route: 033
     Dates: end: 20080101
  26. DIGOXIN [Concomitant]
     Indication: CARDIAC DISORDER
     Route: 048
  27. HYDRALAZINE HCL [Concomitant]
     Indication: PRODUCT USED FOR UNKNOWN INDICATION
     Route: 065
  28. DIGOXIN [Concomitant]
     Indication: PRODUCT USED FOR UNKNOWN INDICATION
     Route: 065
  29. HEPARIN SODIUM INJECTION [Suspect]
     Route: 033
     Dates: start: 20070920, end: 20080401
  30. HEPARIN SODIUM INJECTION [Suspect]
     Route: 065
     Dates: start: 20080618
  31. CARDIZEM [Concomitant]
     Indication: PRODUCT USED FOR UNKNOWN INDICATION
     Route: 042
  32. LEVAQUIN [Concomitant]
     Indication: PRODUCT USED FOR UNKNOWN INDICATION
     Route: 065
  33. PROTONIX [Concomitant]
     Indication: PRODUCT USED FOR UNKNOWN INDICATION
     Route: 065
  34. LOPRESSOR [Concomitant]
     Indication: PRODUCT USED FOR UNKNOWN INDICATION
     Route: 065
  35. HEPARIN SODIUM 1,000 UNITS AND SODIUM CHLORIDE 0.9% [Suspect]
     Indication: PRODUCT USED FOR UNKNOWN INDICATION
     Route: 042
     Dates: start: 20070921, end: 20070922
  36. HEPARIN SODIUM INJECTION [Suspect]
     Route: 033
     Dates: start: 20081014, end: 20081014
  37. OXYCODONE HCL AND ACETAMINOPHEN [Concomitant]
     Indication: PRODUCT USED FOR UNKNOWN INDICATION
     Route: 065
  38. MULTI-VITAMINS [Concomitant]
     Indication: PRODUCT USED FOR UNKNOWN INDICATION
     Route: 065
  39. HEPARIN SODIUM INJECTION [Suspect]
     Route: 042
     Dates: start: 20070921, end: 20070922
  40. HEPARIN SODIUM INJECTION [Suspect]
     Route: 033
     Dates: start: 20071221, end: 20071221
  41. HEPARIN SODIUM INJECTION [Suspect]
     Route: 013
     Dates: start: 20080623, end: 20080715
  42. DILTIAZEM HCL [Concomitant]
     Indication: PRODUCT USED FOR UNKNOWN INDICATION
     Route: 065
  43. DILTIAZEM HCL [Concomitant]
     Route: 042
  44. HEPARIN SODIUM INJECTION [Suspect]
     Route: 042
     Dates: start: 20080623, end: 20080715
  45. PREDNISONE [Concomitant]
     Indication: PRODUCT USED FOR UNKNOWN INDICATION
     Route: 048
  46. ALLOPURINOL [Concomitant]
     Indication: GOUT
     Route: 048
  47. METOPROLOL SUCCINATE [Concomitant]
     Indication: PRODUCT USED FOR UNKNOWN INDICATION
     Route: 065
  48. INDOCIN [Concomitant]
     Indication: PRODUCT USED FOR UNKNOWN INDICATION
     Route: 065

REACTIONS (41)
  - ANAEMIA [None]
  - NONINFECTIOUS PERITONITIS [None]
  - HYPOKALAEMIA [None]
  - BLOODY PERITONEAL EFFLUENT [None]
  - INFECTION [None]
  - HYPOCALCAEMIA [None]
  - THROMBOCYTOPENIA [None]
  - DEHYDRATION [None]
  - MEDICAL DEVICE COMPLICATION [None]
  - GASTROINTESTINAL HAEMORRHAGE [None]
  - ATRIAL FIBRILLATION [None]
  - STAPHYLOCOCCAL INFECTION [None]
  - BLOOD TEST ABNORMAL [None]
  - BLOOD PRESSURE DECREASED [None]
  - FAECES DISCOLOURED [None]
  - VOMITING [None]
  - ORTHOSTATIC HYPOTENSION [None]
  - TACHYCARDIA [None]
  - MENSTRUATION IRREGULAR [None]
  - FLUID INTAKE REDUCED [None]
  - ORAL CANDIDIASIS [None]
  - CARDIO-RESPIRATORY ARREST [None]
  - GASTRITIS EROSIVE [None]
  - DYSPNOEA [None]
  - RENAL FAILURE [None]
  - BACTERAEMIA [None]
  - ASTHENIA [None]
  - PYREXIA [None]
  - HAEMATOCHEZIA [None]
  - CHEST PAIN [None]
  - RETCHING [None]
  - CARDIOACTIVE DRUG LEVEL INCREASED [None]
  - HYPOALBUMINAEMIA [None]
  - DIZZINESS [None]
  - NAUSEA [None]
  - DYSURIA [None]
  - RASH [None]
  - BACK PAIN [None]
  - ENTEROCOCCAL INFECTION [None]
  - DECREASED APPETITE [None]
  - GASTRIC ULCER [None]
